FAERS Safety Report 9275657 (Version 1)
Quarter: 2013Q1

REPORT INFORMATION
  Report Type: Spontaneous
  Country: GR (occurrence: None)
  Receive Date: 20121109
  Receipt Date: 20121109
  Transmission Date: 20140127
  Serious: Yes (Other)
  Sender: FDA-Public Use
  Company Number: 2012S1000128

PATIENT
  Age: 56 Day
  Sex: Female
  Weight: 2 kg

DRUGS (7)
  1. CUBICIN [Suspect]
     Indication: ENTEROCOCCAL INFECTION
     Route: 042
  2. LINEZOLID [Concomitant]
  3. AMPICILLIN [Concomitant]
  4. GENTAMICIN [Concomitant]
  5. CEFEPIME [Concomitant]
  6. CIPROFLOXACIN [Concomitant]
  7. SOLUTIONS FOR PARENTERAL NUTRITION [Concomitant]

REACTIONS (2)
  - Endocarditis [None]
  - Cholestasis [None]
